FAERS Safety Report 9112108 (Version 1)
Quarter: 2013Q1

REPORT INFORMATION
  Report Type: Spontaneous
  Country: US (occurrence: US)
  Receive Date: 20130219
  Receipt Date: 20130219
  Transmission Date: 20140127
  Serious: No
  Sender: FDA-Public Use
  Company Number: US-BRISTOL-MYERS SQUIBB COMPANY-17012733

PATIENT
  Age: 47 Year
  Sex: Female
  Weight: 77.1 kg

DRUGS (4)
  1. ORENCIA FOR INJ [Suspect]
     Indication: RHEUMATOID ARTHRITIS
     Dosage: LAST INF: 28SEP12,PREV 1/WEEK,2/WEEK,3/WEEK
     Route: 042
     Dates: start: 201209
  2. PLAQUENIL [Suspect]
  3. PREDNISONE [Suspect]
  4. CARAFATE [Concomitant]

REACTIONS (3)
  - Musculoskeletal stiffness [Unknown]
  - Rheumatoid arthritis [Not Recovered/Not Resolved]
  - Oesophagitis [Not Recovered/Not Resolved]
